FAERS Safety Report 13305000 (Version 2)
Quarter: 2017Q3

REPORT INFORMATION
  Report Type: Spontaneous
  Country: US (occurrence: US)
  Receive Date: 20170308
  Receipt Date: 20170908
  Transmission Date: 20171127
  Serious: No
  Sender: FDA-Public Use
  Company Number: US-PFIZER INC-2017093034

PATIENT
  Age: 61 Year
  Sex: Female

DRUGS (2)
  1. XELJANZ [Suspect]
     Active Substance: TOFACITINIB CITRATE
     Dosage: 5 MG, UNK
  2. TRAMADOL. [Concomitant]
     Active Substance: TRAMADOL
     Dosage: 50 MG, 2X/DAY

REACTIONS (7)
  - Rhinorrhoea [Unknown]
  - Oropharyngeal pain [Unknown]
  - Viral infection [Unknown]
  - Nasopharyngitis [Unknown]
  - Nasal congestion [Unknown]
  - Rash [Unknown]
  - Cough [Unknown]

NARRATIVE: CASE EVENT DATE: 20161225
